FAERS Safety Report 14612605 (Version 3)
Quarter: 2018Q2

REPORT INFORMATION
  Report Type: Spontaneous
  Country: DE (occurrence: DE)
  Receive Date: 20180308
  Receipt Date: 20180518
  Transmission Date: 20180711
  Serious: Yes (Life-Threatening, Hospitalization)
  Sender: FDA-Public Use
  Company Number: DE-TEVA-2018-DE-863204

PATIENT
  Age: 63 Year
  Sex: Male
  Weight: 85 kg

DRUGS (4)
  1. HYDROCORTISON [Concomitant]
     Active Substance: HYDROCORTISONE
     Dosage: 30 MILLIGRAM DAILY;
  2. L-THYROXIN [Concomitant]
     Active Substance: LEVOTHYROXINE SODIUM
     Dosage: 100 MICROGRAM DAILY;
  3. DESMOPRESSIN [Suspect]
     Active Substance: DESMOPRESSIN
     Indication: DIABETES INSIPIDUS
     Dosage: 4 MICROGRAM DAILY;
     Route: 058
     Dates: start: 20171004
  4. CLOMIPRAMIN [Suspect]
     Active Substance: CLOMIPRAMINE
     Indication: DEPRESSION
     Route: 048
     Dates: start: 20171223, end: 20171226

REACTIONS (2)
  - Inappropriate antidiuretic hormone secretion [Recovering/Resolving]
  - Polyuria [Recovering/Resolving]

NARRATIVE: CASE EVENT DATE: 20171224
